FAERS Safety Report 6173747-7 (Version None)
Quarter: 2009Q2

REPORT INFORMATION
  Report Type: 
  Country: None (occurrence: None)
  Receive Date: 20090430
  Receipt Date: 20090427
  Transmission Date: 20091009
  Serious: Yes (Death)
  Sender: FDA-Public Use
  Company Number: PHHY2009CA03800

PATIENT
  Sex: Male

DRUGS (5)
  1. CLOZARIL [Suspect]
     Indication: SCHIZOPHRENIA
     Dosage: 500 MG/DAY
     Route: 048
     Dates: start: 19980812
  2. SEROQUEL [Concomitant]
     Dosage: 200 MG, BID
  3. LORAZEPAM [Concomitant]
     Dosage: 1 MG X 4/DAY
  4. EFFEXOR [Concomitant]
     Dosage: 150 MG, BID
  5. CRESTOR [Concomitant]
     Dosage: 10 MG, QD

REACTIONS (2)
  - DROWNING [None]
  - MYOCARDIAL INFARCTION [None]
